FAERS Safety Report 6032096-8 (Version None)
Quarter: 2008Q4

REPORT INFORMATION
  Report Type: 
  Country: None (occurrence: None)
  Receive Date: 20081222
  Receipt Date: 20081113
  Transmission Date: 20090506
  Serious: No
  Sender: FDA-Public Use
  Company Number: US-WYE-H06841108

PATIENT
  Sex: Male
  Weight: 60.84 kg

DRUGS (4)
  1. PRISTIQ [Suspect]
     Indication: FATIGUE
     Dosage: 50 MG 1X PER 1 TOT, ORAL
     Route: 048
     Dates: start: 20081107, end: 20081107
  2. PRISTIQ [Suspect]
     Indication: FEAR
     Dosage: 50 MG 1X PER 1 TOT, ORAL
     Route: 048
     Dates: start: 20081107, end: 20081107
  3. PRISTIQ [Suspect]
     Indication: HEART RATE INCREASED
     Dosage: 50 MG 1X PER 1 TOT, ORAL
     Route: 048
     Dates: start: 20081107, end: 20081107
  4. PRISTIQ [Suspect]
     Indication: LAZINESS
     Dosage: 50 MG 1X PER 1 TOT, ORAL
     Route: 048
     Dates: start: 20081107, end: 20081107

REACTIONS (1)
  - HYPERPHAGIA [None]
